FAERS Safety Report 8922702 (Version 1)
Quarter: 2012Q4

REPORT INFORMATION
  Report Type: 
  Country: FR (occurrence: FR)
  Receive Date: 20121123
  Receipt Date: 20121123
  Transmission Date: 20130627
  Serious: Yes (Hospitalization)
  Sender: FDA-Public Use
  Company Number: FR-ROCHE-1155058

PATIENT
  Age: 77 Year
  Sex: Male

DRUGS (20)
  1. MABTHERA [Suspect]
     Indication: PRODUCT USED FOR UNKNOWN INDICATION
     Route: 042
     Dates: start: 20120919, end: 20120919
  2. INEXIUM [Concomitant]
     Indication: PRODUCT USED FOR UNKNOWN INDICATION
     Route: 048
     Dates: end: 20121019
  3. LASILIX [Concomitant]
     Indication: PRODUCT USED FOR UNKNOWN INDICATION
     Route: 048
     Dates: start: 20120725, end: 20121019
  4. FOSRENOL [Concomitant]
     Indication: PRODUCT USED FOR UNKNOWN INDICATION
     Route: 048
     Dates: start: 20121003, end: 20121019
  5. NEORECORMON [Concomitant]
     Indication: PRODUCT USED FOR UNKNOWN INDICATION
     Route: 058
     Dates: end: 20121015
  6. ENDOXAN [Concomitant]
     Indication: PRODUCT USED FOR UNKNOWN INDICATION
     Route: 042
     Dates: start: 20120919, end: 20120919
  7. AMLOR [Concomitant]
     Indication: HYPERTENSION
     Route: 065
     Dates: start: 201204
  8. PARACETAMOL [Concomitant]
     Indication: PRODUCT USED FOR UNKNOWN INDICATION
     Route: 065
  9. POLARAMINE [Concomitant]
     Indication: PRODUCT USED FOR UNKNOWN INDICATION
     Route: 042
  10. DEXAMETHASONE [Concomitant]
     Indication: PRODUCT USED FOR UNKNOWN INDICATION
     Route: 042
  11. UROMITEXAN [Concomitant]
     Indication: PRODUCT USED FOR UNKNOWN INDICATION
     Route: 065
     Dates: start: 201205
  12. SOLUPRED (FRANCE) [Concomitant]
     Route: 065
  13. ZOPHREN [Concomitant]
     Route: 065
     Dates: start: 201205
  14. RENAGEL [Concomitant]
     Route: 065
     Dates: start: 201204
  15. ZYMAD [Concomitant]
     Indication: PRODUCT USED FOR UNKNOWN INDICATION
     Route: 065
     Dates: start: 201204
  16. KAYEXALATE [Concomitant]
     Route: 065
  17. VENOFER [Concomitant]
     Route: 065
     Dates: start: 20121015
  18. RENVELA [Concomitant]
     Route: 065
     Dates: start: 20120903
  19. FOSRENOL [Concomitant]
     Route: 065
     Dates: start: 20121003
  20. GRANOCYTE [Concomitant]
     Route: 065
     Dates: start: 20121019

REACTIONS (2)
  - Neutropenia [Recovering/Resolving]
  - Agranulocytosis [Recovering/Resolving]
